FAERS Safety Report 24529442 (Version 2)
Quarter: 2024Q4

REPORT INFORMATION
  Report Type: Spontaneous
  Country: AR (occurrence: AR)
  Receive Date: 20241021
  Receipt Date: 20241028
  Transmission Date: 20250114
  Serious: Yes (Other)
  Sender: GLAXOSMITHKLINE
  Company Number: AR-GLAXOSMITHKLINE INC-AR2024AMR127024

PATIENT

DRUGS (1)
  1. NUCALA [Suspect]
     Active Substance: MEPOLIZUMAB
     Indication: Asthma
     Dosage: 100 MG, Q4W; EVERY 28 DAYS
     Dates: start: 20240831

REACTIONS (2)
  - Bronchopulmonary aspergillosis allergic [Unknown]
  - Cough [Not Recovered/Not Resolved]

NARRATIVE: CASE EVENT DATE: 20240901
